FAERS Safety Report 23717389 (Version 5)
Quarter: 2024Q2

REPORT INFORMATION
  Report Type: Other
  Country: CA (occurrence: None)
  Receive Date: 20240408
  Receipt Date: 20240503
  Transmission Date: 20240716
  Serious: No
  Sender: FDA-Public Use
  Company Number: CA-ROCHE-3540690

PATIENT
  Sex: Male

DRUGS (1)
  1. OCREVUS [Suspect]
     Active Substance: OCRELIZUMAB
     Indication: Relapsing-remitting multiple sclerosis
     Dosage: THEN 600 MG EVERY 6 MONTHS, CONCENTRATE FOR INTRAVENOUS INFUSION
     Route: 042
     Dates: start: 20201130

REACTIONS (2)
  - Skin laceration [Not Recovered/Not Resolved]
  - Influenza [Not Recovered/Not Resolved]
